FAERS Safety Report 19587841 (Version 1)
Quarter: 2021Q3

REPORT INFORMATION
  Report Type: Spontaneous
  Country: US (occurrence: US)
  Receive Date: 20210721
  Receipt Date: 20210721
  Transmission Date: 20211014
  Serious: Yes (Other)
  Sender: FDA-Public Use
  Company Number: None

PATIENT
  Age: 65 Year
  Sex: Male
  Weight: 83.25 kg

DRUGS (5)
  1. TUMS [Concomitant]
     Active Substance: CALCIUM CARBONATE
  2. JARDIANCE [Suspect]
     Active Substance: EMPAGLIFLOZIN
     Indication: TYPE 2 DIABETES MELLITUS
     Dosage: ?          QUANTITY:1 TABLET(S);?
     Route: 048
     Dates: start: 20210606, end: 20210707
  3. ZANTAC [Concomitant]
     Active Substance: RANITIDINE HYDROCHLORIDE
  4. NAUZENE [Concomitant]
  5. GAS?X [Concomitant]
     Active Substance: DIMETHICONE

REACTIONS (11)
  - Biliary colic [None]
  - Emotional distress [None]
  - Abdominal pain upper [None]
  - Therapy cessation [None]
  - Pain in jaw [None]
  - Myocardial infarction [None]
  - Nausea [None]
  - Dyspepsia [None]
  - Pain in extremity [None]
  - Weight decreased [None]
  - Abdominal discomfort [None]

NARRATIVE: CASE EVENT DATE: 20210707
